FAERS Safety Report 8167483-5 (Version None)
Quarter: 2012Q1

REPORT INFORMATION
  Report Type: 
  Country: None (occurrence: None)
  Receive Date: 20120221
  Receipt Date: 20120206
  Transmission Date: 20120608
  Serious: Yes (Hospitalization)
  Sender: FDA-Public Use
  Company Number: CR12-0011

PATIENT
  Age: 70 Year
  Sex: Male
  Weight: 143.3367 kg

DRUGS (2)
  1. PRIMATENE MIST [Suspect]
     Indication: ASTHMA
     Dosage: 2 PUFFS/DAY, INHALATION
  2. PROSTATE MEDICATION [Concomitant]

REACTIONS (5)
  - HEART RATE INCREASED [None]
  - CHEST PAIN [None]
  - DIZZINESS [None]
  - CEREBRAL THROMBOSIS [None]
  - DYSPNOEA [None]
